FAERS Safety Report 12767434 (Version 1)
Quarter: 2016Q3

REPORT INFORMATION
  Report Type: Spontaneous
  Country: GB (occurrence: GB)
  Receive Date: 20160921
  Receipt Date: 20160921
  Transmission Date: 20161109
  Serious: Yes (Hospitalization)
  Sender: FDA-Public Use
  Company Number: GB-TEVA-693247ACC

PATIENT
  Age: 32 Year
  Sex: Male
  Weight: 80 kg

DRUGS (1)
  1. ERYTHROMYCIN. [Suspect]
     Active Substance: ERYTHROMYCIN
     Indication: EAR INFECTION BACTERIAL
     Dosage: 2000 MILLIGRAM DAILY;
     Route: 048
     Dates: start: 20160818, end: 20160824

REACTIONS (4)
  - Nausea [Recovering/Resolving]
  - Acute kidney injury [Recovering/Resolving]
  - Vomiting [Recovering/Resolving]
  - Pharyngeal oedema [Recovering/Resolving]

NARRATIVE: CASE EVENT DATE: 20160824
